FAERS Safety Report 10102369 (Version 1)
Quarter: 2014Q2

REPORT INFORMATION
  Report Type: Report from Study
  Country: BR (occurrence: BR)
  Receive Date: 20140424
  Receipt Date: 20140424
  Transmission Date: 20141212
  Serious: Yes (Other)
  Sender: FDA-Public Use
  Company Number: PHHY2014BR049174

PATIENT
  Sex: Male
  Weight: 95 kg

DRUGS (6)
  1. DIOVAN AMLO FIX [Suspect]
     Indication: HYPERTENSION
     Dosage: 1 DF (VALS 320MG, AMLO 10MG) AT 10:00AM
     Route: 048
  2. ATENSINE [Concomitant]
     Indication: BLOOD PRESSURE ABNORMAL
     Dosage: UNK UKN, UNK
  3. LEVOID [Concomitant]
     Indication: HYPOTHYROIDISM
     Dosage: UNK UKN, UNK
  4. CLOPIDOGREL [Concomitant]
     Indication: BLOOD VISCOSITY INCREASED
     Dosage: UNK UKN, UNK
  5. AAS [Concomitant]
     Indication: ANTICOAGULANT THERAPY
     Dosage: UNK UKN, UNK
     Dates: start: 20130826
  6. SIMVASTATIN [Concomitant]
     Indication: BLOOD CHOLESTEROL ABNORMAL
     Dosage: UNK UKN, UNK

REACTIONS (4)
  - Diabetes mellitus [Not Recovered/Not Resolved]
  - Arterial occlusive disease [Not Recovered/Not Resolved]
  - Peripheral swelling [Not Recovered/Not Resolved]
  - Somnolence [Not Recovered/Not Resolved]
